FAERS Safety Report 6261334-1 (Version None)
Quarter: 2009Q3

REPORT INFORMATION
  Report Type: 
  Country: None (occurrence: None)
  Receive Date: 20090709
  Receipt Date: 20090702
  Transmission Date: 20100115
  Serious: Yes (Other)
  Sender: FDA-Public Use
  Company Number: GB-ROCHE-641815

PATIENT
  Sex: Male
  Weight: 81 kg

DRUGS (7)
  1. CAPECITABINE [Suspect]
     Indication: COLORECTAL CANCER METASTATIC
     Dosage: LAST DOSE PRIOR TO SAE 02 JULY 2009.
     Route: 048
     Dates: start: 20080918
  2. BEVACIZUMAB [Suspect]
     Indication: COLORECTAL CANCER METASTATIC
     Dosage: LAST DOSE PRIOR TO SAE WAS 25 JUNE 2009.
     Route: 042
     Dates: start: 20080918
  3. LOPERAMIDE HYDROCHLORIDE [Concomitant]
     Dates: start: 20080918
  4. PYRIDOXINE [Concomitant]
  5. CODEINE PHOSPHATE [Concomitant]
  6. DIFFLAM [Concomitant]
  7. AQUEOUS CREAM [Concomitant]

REACTIONS (1)
  - TRANSIENT ISCHAEMIC ATTACK [None]
